FAERS Safety Report 6545638-0 (Version None)
Quarter: 2010Q1

REPORT INFORMATION
  Report Type: 
  Country: None (occurrence: None)
  Receive Date: 20100121
  Receipt Date: 20100111
  Transmission Date: 20100710
  Serious: Yes (Other)
  Sender: FDA-Public Use
  Company Number: US-CELGENEUS-163-21880-10010713

PATIENT
  Sex: Male

DRUGS (3)
  1. REVLIMID [Suspect]
     Indication: MULTIPLE MYELOMA
     Route: 048
     Dates: start: 20091105, end: 20091211
  2. REVLIMID [Suspect]
     Route: 048
     Dates: start: 20081101
  3. REVLIMID [Suspect]
     Route: 048
     Dates: start: 20090901, end: 20091001

REACTIONS (2)
  - EYE PAIN [None]
  - VISUAL IMPAIRMENT [None]
